FAERS Safety Report 8264544-7 (Version None)
Quarter: 2012Q2

REPORT INFORMATION
  Report Type: 
  Country: None (occurrence: None)
  Receive Date: 20120406
  Receipt Date: 20120329
  Transmission Date: 20120825
  Serious: Yes (Other)
  Sender: FDA-Public Use
  Company Number: NZ-UCBSA-049678

PATIENT
  Age: 26 Year
  Sex: Female

DRUGS (5)
  1. VIMPAT [Suspect]
     Dosage: 400MG DAILY
     Dates: start: 20110101
  2. FOLIC ACID [Concomitant]
     Dosage: DOSE: 5 MG
  3. VALPROATE SODIUM [Concomitant]
  4. VIGABATRIN [Concomitant]
  5. CLOBAZAM [Concomitant]

REACTIONS (3)
  - FOETAL DEATH [None]
  - TWIN PREGNANCY [None]
  - MATERNAL EXPOSURE DURING PREGNANCY [None]
